FAERS Safety Report 7934984-1 (Version None)
Quarter: 2011Q4

REPORT INFORMATION
  Report Type: 
  Country: None (occurrence: None)
  Receive Date: 20111122
  Receipt Date: 20111122
  Transmission Date: 20120403
  Serious: Yes (Hospitalization, Disabling, Other)
  Sender: FDA-Public Use
  Company Number: GB-PFIZER INC-2008055039

PATIENT
  Age: 51 Year
  Sex: Male

DRUGS (5)
  1. DOTHIEPIN HYDROCHLORIDE [Suspect]
     Indication: DEPRESSION
  2. HYDROCORTISONE [Concomitant]
  3. PROPRANOLOL [Interacting]
     Indication: MIGRAINE
  4. SILDENAFIL [Interacting]
  5. ATENOLOL [Interacting]
     Indication: HYPERTENSION

REACTIONS (10)
  - BLOOD CORTISOL DECREASED [None]
  - HYPOPITUITARISM [None]
  - DRUG INTERACTION [None]
  - PITUITARY TUMOUR BENIGN [None]
  - HEADACHE [None]
  - PITUITARY HAEMORRHAGE [None]
  - DIPLOPIA [None]
  - HORMONE LEVEL ABNORMAL [None]
  - NAUSEA [None]
  - IIIRD NERVE PARALYSIS [None]
